FAERS Safety Report 15887972 (Version 2)
Quarter: 2019Q3

REPORT INFORMATION
  Report Type: Spontaneous
  Country: US (occurrence: US)
  Receive Date: 20190130
  Receipt Date: 20190903
  Transmission Date: 20191004
  Serious: No
  Sender: FDA-Public Use
  Company Number: US-PFIZER INC-2019042225

PATIENT
  Age: 76 Year
  Sex: Female
  Weight: 61 kg

DRUGS (1)
  1. IBRANCE [Suspect]
     Active Substance: PALBOCICLIB
     Indication: BREAST CANCER METASTATIC
     Dosage: 125 MG, CYCLIC [DAYS 1-21 Q 28 DAYS]
     Route: 048
     Dates: start: 20150201

REACTIONS (4)
  - Alopecia [Unknown]
  - Dysphagia [Unknown]
  - Thyroid mass [Unknown]
  - Full blood count decreased [Unknown]
